FAERS Safety Report 9555827 (Version 1)
Quarter: 2013Q3

REPORT INFORMATION
  Report Type: Spontaneous
  Country: GB (occurrence: GB)
  Receive Date: 20130926
  Receipt Date: 20130926
  Transmission Date: 20140515
  Serious: Yes (Other)
  Sender: FDA-Public Use
  Company Number: GB-009507513-1207GBR008346

PATIENT
  Age: 23 Year
  Sex: Female
  Weight: 111 kg

DRUGS (6)
  1. MK-8415 [Suspect]
     Dosage: UNK DF, UNK
     Dates: start: 20120523, end: 20120524
  2. MK-8415 [Suspect]
     Dosage: UNK DF, UNK
     Dates: start: 20120527
  3. MAGNESIUM ALGINATE (+) SODIUM ALGINATE [Concomitant]
     Dosage: UNK
     Dates: start: 20120416, end: 20120420
  4. HYDROCORTISONE [Concomitant]
     Dosage: UNK
     Dates: start: 20120527
  5. NEXPLANON [Concomitant]
     Dosage: 1 DF, UNK
     Route: 059
     Dates: start: 20120619, end: 20120620
  6. LANOLIN [Concomitant]
     Dosage: UNK
     Dates: start: 20120502, end: 20120503

REACTIONS (4)
  - Dermatitis [Unknown]
  - Implant site rash [Unknown]
  - Pruritus [Unknown]
  - Implant site rash [Unknown]
